FAERS Safety Report 24620600 (Version 3)
Quarter: 2025Q2

REPORT INFORMATION
  Report Type: Spontaneous
  Country: CA (occurrence: CA)
  Receive Date: 20241114
  Receipt Date: 20250619
  Transmission Date: 20250717
  Serious: Yes (Death, Other)
  Sender: BRISTOL-MYERS SQUIBB COMPANY
  Company Number: CA-BRISTOL-MYERS SQUIBB COMPANY-2024-178674

PATIENT
  Age: 44 Year
  Sex: Female

DRUGS (451)
  1. ORENCIA [Suspect]
     Active Substance: ABATACEPT
     Indication: Rheumatoid arthritis
  2. ORENCIA [Suspect]
     Active Substance: ABATACEPT
     Indication: Rheumatoid arthritis
     Route: 042
  3. ORENCIA [Suspect]
     Active Substance: ABATACEPT
     Indication: Rheumatoid arthritis
     Route: 058
  4. ORENCIA [Suspect]
     Active Substance: ABATACEPT
  5. ORENCIA [Suspect]
     Active Substance: ABATACEPT
     Route: 058
  6. TRIAMCINOLONE ACETONIDE [Suspect]
     Active Substance: TRIAMCINOLONE ACETONIDE
     Indication: Rheumatoid arthritis
     Route: 014
  7. ACETAMINOPHEN [Concomitant]
     Active Substance: ACETAMINOPHEN
     Indication: Rheumatoid arthritis
  8. ACETAMINOPHEN\OXYCODONE HYDROCHLORIDE [Concomitant]
     Active Substance: ACETAMINOPHEN\OXYCODONE HYDROCHLORIDE
     Indication: Product used for unknown indication
  9. ACTEMRA [Concomitant]
     Active Substance: TOCILIZUMAB
     Indication: Product used for unknown indication
     Route: 042
  10. ACTEMRA [Concomitant]
     Active Substance: TOCILIZUMAB
  11. ACTEMRA [Concomitant]
     Active Substance: TOCILIZUMAB
     Route: 042
  12. ACTEMRA [Concomitant]
     Active Substance: TOCILIZUMAB
     Route: 042
  13. ACTEMRA [Concomitant]
     Active Substance: TOCILIZUMAB
     Route: 042
  14. ACTEMRA [Concomitant]
     Active Substance: TOCILIZUMAB
  15. ACTEMRA [Concomitant]
     Active Substance: TOCILIZUMAB
     Route: 042
  16. ACTEMRA [Concomitant]
     Active Substance: TOCILIZUMAB
     Route: 042
  17. ACTEMRA [Concomitant]
     Active Substance: TOCILIZUMAB
  18. ACTEMRA [Concomitant]
     Active Substance: TOCILIZUMAB
     Route: 042
  19. ACTEMRA [Concomitant]
     Active Substance: TOCILIZUMAB
     Route: 042
  20. ACTEMRA [Concomitant]
     Active Substance: TOCILIZUMAB
     Route: 042
  21. ACTEMRA [Concomitant]
     Active Substance: TOCILIZUMAB
  22. ACTEMRA [Concomitant]
     Active Substance: TOCILIZUMAB
     Route: 042
  23. ACTEMRA [Concomitant]
     Active Substance: TOCILIZUMAB
     Route: 058
  24. ADALIMUMAB [Concomitant]
     Active Substance: ADALIMUMAB
     Indication: Psoriatic arthropathy
     Route: 058
  25. ADALIMUMAB [Concomitant]
     Active Substance: ADALIMUMAB
     Route: 048
  26. ADALIMUMAB [Concomitant]
     Active Substance: ADALIMUMAB
     Route: 058
  27. ALENDRONIC ACID [Concomitant]
     Active Substance: ALENDRONIC ACID
     Indication: Rheumatoid arthritis
     Route: 048
  28. ALENDRONIC ACID [Concomitant]
     Active Substance: ALENDRONIC ACID
  29. ALENDRONIC ACID [Concomitant]
     Active Substance: ALENDRONIC ACID
  30. ALENDRONIC ACID [Concomitant]
     Active Substance: ALENDRONIC ACID
  31. ALENDRONIC ACID [Concomitant]
     Active Substance: ALENDRONIC ACID
     Route: 048
  32. ALENDRONIC ACID [Concomitant]
     Active Substance: ALENDRONIC ACID
     Route: 048
  33. PREDNISONE [Concomitant]
     Active Substance: PREDNISONE
     Indication: Rheumatoid arthritis
     Route: 048
  34. PREDNISONE [Concomitant]
     Active Substance: PREDNISONE
  35. PREDNISONE [Concomitant]
     Active Substance: PREDNISONE
  36. PREDNISONE [Concomitant]
     Active Substance: PREDNISONE
     Route: 048
  37. APREMILAST [Concomitant]
     Active Substance: APREMILAST
     Indication: Product used for unknown indication
     Route: 048
  38. APREMILAST [Concomitant]
     Active Substance: APREMILAST
     Route: 048
  39. APREMILAST [Concomitant]
     Active Substance: APREMILAST
     Route: 042
  40. APREMILAST [Concomitant]
     Active Substance: APREMILAST
  41. APREPITANT [Concomitant]
     Active Substance: APREPITANT
     Indication: Product used for unknown indication
     Route: 042
  42. ARAVA [Concomitant]
     Active Substance: LEFLUNOMIDE
     Indication: Rheumatoid arthritis
     Route: 048
  43. ARAVA [Concomitant]
     Active Substance: LEFLUNOMIDE
     Route: 048
  44. ARAVA [Concomitant]
     Active Substance: LEFLUNOMIDE
  45. ARAVA [Concomitant]
     Active Substance: LEFLUNOMIDE
     Route: 048
  46. CELECOXIB [Concomitant]
     Active Substance: CELECOXIB
     Indication: Product used for unknown indication
  47. CELECOXIB [Concomitant]
     Active Substance: CELECOXIB
  48. CELECOXIB [Concomitant]
     Active Substance: CELECOXIB
  49. CELECOXIB [Concomitant]
     Active Substance: CELECOXIB
     Route: 048
  50. CELECOXIB [Concomitant]
     Active Substance: CELECOXIB
  51. CELECOXIB [Concomitant]
     Active Substance: CELECOXIB
     Route: 048
  52. CERTOLIZUMAB PEGOL [Concomitant]
     Active Substance: CERTOLIZUMAB PEGOL
     Indication: Product used for unknown indication
  53. CETIRIZINE HYDROCHLORIDE [Concomitant]
     Active Substance: CETIRIZINE HYDROCHLORIDE
     Indication: Rheumatoid arthritis
  54. CETIRIZINE HYDROCHLORIDE [Concomitant]
     Active Substance: CETIRIZINE HYDROCHLORIDE
     Route: 048
  55. CETIRIZINE HYDROCHLORIDE [Concomitant]
     Active Substance: CETIRIZINE HYDROCHLORIDE
     Route: 048
  56. CETIRIZINE HYDROCHLORIDE [Concomitant]
     Active Substance: CETIRIZINE HYDROCHLORIDE
     Route: 048
  57. CETIRIZINE HYDROCHLORIDE [Concomitant]
     Active Substance: CETIRIZINE HYDROCHLORIDE
  58. CETIRIZINE HYDROCHLORIDE [Concomitant]
     Active Substance: CETIRIZINE HYDROCHLORIDE
  59. CETIRIZINE HYDROCHLORIDE [Concomitant]
     Active Substance: CETIRIZINE HYDROCHLORIDE
  60. CETIRIZINE HYDROCHLORIDE [Concomitant]
     Active Substance: CETIRIZINE HYDROCHLORIDE
     Route: 048
  61. CETIRIZINE HYDROCHLORIDE [Concomitant]
     Active Substance: CETIRIZINE HYDROCHLORIDE
  62. CETIRIZINE HYDROCHLORIDE [Concomitant]
     Active Substance: CETIRIZINE HYDROCHLORIDE
  63. CETIRIZINE HYDROCHLORIDE [Concomitant]
     Active Substance: CETIRIZINE HYDROCHLORIDE
  64. CETIRIZINE HYDROCHLORIDE [Concomitant]
     Active Substance: CETIRIZINE HYDROCHLORIDE
  65. CETIRIZINE HYDROCHLORIDE [Concomitant]
     Active Substance: CETIRIZINE HYDROCHLORIDE
     Route: 048
  66. CETIRIZINE HYDROCHLORIDE [Concomitant]
     Active Substance: CETIRIZINE HYDROCHLORIDE
     Route: 048
  67. CETIRIZINE HYDROCHLORIDE [Concomitant]
     Active Substance: CETIRIZINE HYDROCHLORIDE
     Route: 048
  68. CHLORAPREP [Concomitant]
     Active Substance: CHLORHEXIDINE GLUCONATE\ISOPROPYL ALCOHOL
     Indication: Product used for unknown indication
     Route: 061
  69. CHLORAPREP [Concomitant]
     Active Substance: CHLORHEXIDINE GLUCONATE\ISOPROPYL ALCOHOL
  70. CHLORAPREP [Concomitant]
     Active Substance: CHLORHEXIDINE GLUCONATE\ISOPROPYL ALCOHOL
     Route: 061
  71. CHLORHEXIDINE GLUCONATE [Concomitant]
     Active Substance: CHLORHEXIDINE GLUCONATE
     Indication: Product used for unknown indication
     Route: 061
  72. CHLORHEXIDINE GLUCONATE [Concomitant]
     Active Substance: CHLORHEXIDINE GLUCONATE
     Route: 048
  73. CHLORHEXIDINE GLUCONATE [Concomitant]
     Active Substance: CHLORHEXIDINE GLUCONATE
     Route: 002
  74. CHLORHEXIDINE GLUCONATE\ISOPROPYL ALCOHOL [Concomitant]
     Active Substance: CHLORHEXIDINE GLUCONATE\ISOPROPYL ALCOHOL
     Indication: Product used for unknown indication
     Route: 048
  75. CHLORHEXIDINE GLUCONATE\ISOPROPYL ALCOHOL [Concomitant]
     Active Substance: CHLORHEXIDINE GLUCONATE\ISOPROPYL ALCOHOL
     Route: 002
  76. CHLORHEXIDINE GLUCONATE\ISOPROPYL ALCOHOL [Concomitant]
     Active Substance: CHLORHEXIDINE GLUCONATE\ISOPROPYL ALCOHOL
     Route: 061
  77. CIMZIA [Concomitant]
     Active Substance: CERTOLIZUMAB PEGOL
     Indication: Rheumatoid arthritis
     Route: 058
  78. CIMZIA [Concomitant]
     Active Substance: CERTOLIZUMAB PEGOL
     Route: 058
  79. CIMZIA [Concomitant]
     Active Substance: CERTOLIZUMAB PEGOL
     Route: 058
  80. CIMZIA [Concomitant]
     Active Substance: CERTOLIZUMAB PEGOL
  81. CIMZIA [Concomitant]
     Active Substance: CERTOLIZUMAB PEGOL
  82. CIMZIA [Concomitant]
     Active Substance: CERTOLIZUMAB PEGOL
  83. CIMZIA [Concomitant]
     Active Substance: CERTOLIZUMAB PEGOL
     Route: 058
  84. CIMZIA [Concomitant]
     Active Substance: CERTOLIZUMAB PEGOL
     Route: 058
  85. CIMZIA [Concomitant]
     Active Substance: CERTOLIZUMAB PEGOL
     Route: 058
  86. CIMZIA [Concomitant]
     Active Substance: CERTOLIZUMAB PEGOL
  87. CORTISONE ACETATE [Concomitant]
     Active Substance: CORTISONE ACETATE
     Indication: Rheumatoid arthritis
  88. CORTISONE ACETATE [Concomitant]
     Active Substance: CORTISONE ACETATE
     Route: 048
  89. CORTISONE ACETATE [Concomitant]
     Active Substance: CORTISONE ACETATE
     Route: 058
  90. CORTISONE ACETATE [Concomitant]
     Active Substance: CORTISONE ACETATE
     Route: 003
  91. CORTISONE ACETATE [Concomitant]
     Active Substance: CORTISONE ACETATE
     Route: 048
  92. CORTISONE ACETATE [Concomitant]
     Active Substance: CORTISONE ACETATE
     Route: 061
  93. CORTISONE ACETATE [Concomitant]
     Active Substance: CORTISONE ACETATE
     Route: 058
  94. CORTISONE ACETATE [Concomitant]
     Active Substance: CORTISONE ACETATE
     Route: 058
  95. CORTISONE ACETATE [Concomitant]
     Active Substance: CORTISONE ACETATE
     Route: 058
  96. CORTISONE ACETATE [Concomitant]
     Active Substance: CORTISONE ACETATE
     Route: 003
  97. CORTISONE ACETATE [Concomitant]
     Active Substance: CORTISONE ACETATE
     Route: 003
  98. CORTISONE ACETATE [Concomitant]
     Active Substance: CORTISONE ACETATE
  99. CORTISONE ACETATE [Concomitant]
     Active Substance: CORTISONE ACETATE
     Route: 003
  100. CORTISONE ACETATE [Concomitant]
     Active Substance: CORTISONE ACETATE
     Route: 048
  101. CORTISONE ACETATE [Concomitant]
     Active Substance: CORTISONE ACETATE
     Route: 048
  102. CORTISONE ACETATE [Concomitant]
     Active Substance: CORTISONE ACETATE
     Route: 048
  103. CORTISONE ACETATE [Concomitant]
     Active Substance: CORTISONE ACETATE
     Route: 048
  104. CORTISONE ACETATE [Concomitant]
     Active Substance: CORTISONE ACETATE
     Route: 048
  105. CORTISONE ACETATE [Concomitant]
     Active Substance: CORTISONE ACETATE
     Route: 061
  106. CORTISONE ACETATE [Concomitant]
     Active Substance: CORTISONE ACETATE
  107. CORTISONE ACETATE [Concomitant]
     Active Substance: CORTISONE ACETATE
     Route: 048
  108. CORTISONE ACETATE [Concomitant]
     Active Substance: CORTISONE ACETATE
  109. CORTISONE ACETATE [Concomitant]
     Active Substance: CORTISONE ACETATE
     Route: 061
  110. CORTISONE ACETATE [Concomitant]
     Active Substance: CORTISONE ACETATE
     Route: 061
  111. CORTISONE ACETATE [Concomitant]
     Active Substance: CORTISONE ACETATE
  112. CORTISONE ACETATE [Concomitant]
     Active Substance: CORTISONE ACETATE
     Route: 048
  113. CORTISONE ACETATE [Concomitant]
     Active Substance: CORTISONE ACETATE
     Route: 003
  114. CORTISONE ACETATE [Concomitant]
     Active Substance: CORTISONE ACETATE
     Route: 048
  115. COSENTYX [Concomitant]
     Active Substance: SECUKINUMAB
     Indication: Rheumatoid arthritis
  116. COSENTYX [Concomitant]
     Active Substance: SECUKINUMAB
     Indication: Psoriatic arthropathy
     Route: 005
  117. SECUKINUMAB [Concomitant]
     Active Substance: SECUKINUMAB
     Indication: Product used for unknown indication
  118. DESOXIMETASONE [Concomitant]
     Active Substance: DESOXIMETASONE
     Indication: Rheumatoid arthritis
     Route: 048
  119. DESOXIMETASONE [Concomitant]
     Active Substance: DESOXIMETASONE
     Route: 048
  120. DESOXIMETASONE [Concomitant]
     Active Substance: DESOXIMETASONE
     Route: 048
  121. DESOXIMETASONE [Concomitant]
     Active Substance: DESOXIMETASONE
     Route: 048
  122. DESOXIMETASONE [Concomitant]
     Active Substance: DESOXIMETASONE
     Route: 048
  123. DESOXIMETASONE [Concomitant]
     Active Substance: DESOXIMETASONE
     Route: 061
  124. DESOXIMETASONE [Concomitant]
     Active Substance: DESOXIMETASONE
     Route: 058
  125. DESOXIMETASONE [Concomitant]
     Active Substance: DESOXIMETASONE
     Route: 058
  126. DESOXIMETASONE [Concomitant]
     Active Substance: DESOXIMETASONE
  127. DESOXIMETASONE [Concomitant]
     Active Substance: DESOXIMETASONE
  128. DESOXIMETASONE [Concomitant]
     Active Substance: DESOXIMETASONE
  129. DESOXIMETASONE [Concomitant]
     Active Substance: DESOXIMETASONE
     Route: 061
  130. DESOXIMETASONE [Concomitant]
     Active Substance: DESOXIMETASONE
     Route: 061
  131. DESOXIMETASONE [Concomitant]
     Active Substance: DESOXIMETASONE
  132. DESOXIMETASONE [Concomitant]
     Active Substance: DESOXIMETASONE
  133. DESOXIMETASONE [Concomitant]
     Active Substance: DESOXIMETASONE
     Route: 048
  134. DESOXIMETASONE [Concomitant]
     Active Substance: DESOXIMETASONE
     Route: 003
  135. DESOXIMETASONE [Concomitant]
     Active Substance: DESOXIMETASONE
  136. DESOXIMETASONE [Concomitant]
     Active Substance: DESOXIMETASONE
     Route: 058
  137. DESOXIMETASONE [Concomitant]
     Active Substance: DESOXIMETASONE
     Route: 042
  138. DESOXIMETASONE [Concomitant]
     Active Substance: DESOXIMETASONE
     Route: 061
  139. DESOXIMETASONE [Concomitant]
     Active Substance: DESOXIMETASONE
     Route: 003
  140. DESOXIMETASONE [Concomitant]
     Active Substance: DESOXIMETASONE
     Route: 048
  141. DESOXIMETASONE [Concomitant]
     Active Substance: DESOXIMETASONE
     Route: 003
  142. DESOXIMETASONE [Concomitant]
     Active Substance: DESOXIMETASONE
  143. DESOXIMETASONE [Concomitant]
     Active Substance: DESOXIMETASONE
     Route: 003
  144. DESOXIMETASONE [Concomitant]
     Active Substance: DESOXIMETASONE
     Route: 048
  145. DICLOFENAC DIETHYLAMINE [Concomitant]
     Active Substance: DICLOFENAC DIETHYLAMINE
     Indication: Product used for unknown indication
  146. DICLOFENAC POTASSIUM [Concomitant]
     Active Substance: DICLOFENAC POTASSIUM
     Indication: Product used for unknown indication
  147. DICLOFENAC POTASSIUM [Concomitant]
     Active Substance: DICLOFENAC POTASSIUM
     Route: 058
  148. DICLOFENAC POTASSIUM [Concomitant]
     Active Substance: DICLOFENAC POTASSIUM
  149. DICLOFENAC POTASSIUM [Concomitant]
     Active Substance: DICLOFENAC POTASSIUM
     Route: 048
  150. DICLOFENAC POTASSIUM [Concomitant]
     Active Substance: DICLOFENAC POTASSIUM
     Route: 031
  151. DICLOFENAC POTASSIUM [Concomitant]
     Active Substance: DICLOFENAC POTASSIUM
     Route: 058
  152. DICLOFENAC SODIUM [Concomitant]
     Active Substance: DICLOFENAC SODIUM
     Indication: Product used for unknown indication
     Route: 058
  153. DICLOFENAC SODIUM [Concomitant]
     Active Substance: DICLOFENAC SODIUM
  154. DICLOFENAC SODIUM [Concomitant]
     Active Substance: DICLOFENAC SODIUM
  155. DICLOFENAC SODIUM [Concomitant]
     Active Substance: DICLOFENAC SODIUM
     Route: 058
  156. DICLOFENAC SODIUM [Concomitant]
     Active Substance: DICLOFENAC SODIUM
  157. DICLOFENAC SODIUM [Concomitant]
     Active Substance: DICLOFENAC SODIUM
     Route: 058
  158. DICLOFENAC SODIUM [Concomitant]
     Active Substance: DICLOFENAC SODIUM
     Route: 031
  159. DICLOFENAC SODIUM [Concomitant]
     Active Substance: DICLOFENAC SODIUM
     Route: 048
  160. DICLOFENAC SODIUM [Concomitant]
     Active Substance: DICLOFENAC SODIUM
  161. DICLOFENAC SODIUM [Concomitant]
     Active Substance: DICLOFENAC SODIUM
     Route: 058
  162. DICLOFENAC SODIUM [Concomitant]
     Active Substance: DICLOFENAC SODIUM
  163. DOXYCYCLINE HYCLATE [Concomitant]
     Active Substance: DOXYCYCLINE HYCLATE
     Indication: Product used for unknown indication
  164. ENBREL [Concomitant]
     Active Substance: ETANERCEPT
     Indication: Rheumatoid arthritis
     Route: 058
  165. ENBREL [Concomitant]
     Active Substance: ETANERCEPT
     Indication: Psoriatic arthropathy
     Route: 058
  166. ENBREL [Concomitant]
     Active Substance: ETANERCEPT
  167. ENBREL [Concomitant]
     Active Substance: ETANERCEPT
     Route: 058
  168. ENBREL [Concomitant]
     Active Substance: ETANERCEPT
  169. ENBREL [Concomitant]
     Active Substance: ETANERCEPT
     Route: 058
  170. ENBREL [Concomitant]
     Active Substance: ETANERCEPT
     Route: 058
  171. ENBREL [Concomitant]
     Active Substance: ETANERCEPT
     Route: 058
  172. ERELZI [Concomitant]
     Active Substance: ETANERCEPT-SZZS
     Indication: Rheumatoid arthritis
     Route: 058
  173. ERELZI [Concomitant]
     Active Substance: ETANERCEPT-SZZS
  174. FLUMETHASONE PIVALATE [Concomitant]
     Active Substance: FLUMETHASONE PIVALATE
     Indication: Rheumatoid arthritis
     Route: 058
  175. FLUMETHASONE PIVALATE\NEOMYCIN SULFATE [Concomitant]
     Active Substance: FLUMETHASONE PIVALATE\NEOMYCIN SULFATE
     Indication: Rheumatoid arthritis
  176. FOLIC ACID [Concomitant]
     Active Substance: FOLIC ACID
     Indication: Rheumatoid arthritis
     Route: 058
  177. FOLIC ACID [Concomitant]
     Active Substance: FOLIC ACID
  178. FOLIC ACID [Concomitant]
     Active Substance: FOLIC ACID
  179. FOLIC ACID [Concomitant]
     Active Substance: FOLIC ACID
  180. FOLIC ACID [Concomitant]
     Active Substance: FOLIC ACID
     Route: 048
  181. FOLIC ACID [Concomitant]
     Active Substance: FOLIC ACID
     Route: 048
  182. FOLIC ACID [Concomitant]
     Active Substance: FOLIC ACID
     Route: 058
  183. FOLIC ACID [Concomitant]
     Active Substance: FOLIC ACID
     Route: 048
  184. FOLIC ACID [Concomitant]
     Active Substance: FOLIC ACID
     Route: 048
  185. FOLIC ACID [Concomitant]
     Active Substance: FOLIC ACID
     Route: 048
  186. FOLIC ACID [Concomitant]
     Active Substance: FOLIC ACID
  187. FOLIC ACID [Concomitant]
     Active Substance: FOLIC ACID
     Route: 048
  188. FOLIC ACID [Concomitant]
     Active Substance: FOLIC ACID
  189. FOLIC ACID [Concomitant]
     Active Substance: FOLIC ACID
  190. FOLIC ACID [Concomitant]
     Active Substance: FOLIC ACID
  191. FOLIC ACID [Concomitant]
     Active Substance: FOLIC ACID
  192. FOLIC ACID [Concomitant]
     Active Substance: FOLIC ACID
     Route: 048
  193. FOLIC ACID [Concomitant]
     Active Substance: FOLIC ACID
     Route: 048
  194. FOLIC ACID [Concomitant]
     Active Substance: FOLIC ACID
     Route: 058
  195. FOSAMAX [Concomitant]
     Active Substance: ALENDRONATE SODIUM
     Indication: Rheumatoid arthritis
     Route: 058
  196. FOSAMAX [Concomitant]
     Active Substance: ALENDRONATE SODIUM
     Route: 048
  197. FOSAMAX [Concomitant]
     Active Substance: ALENDRONATE SODIUM
  198. GOLIMUMAB [Concomitant]
     Active Substance: GOLIMUMAB
     Indication: Rheumatoid arthritis
  199. GOLIMUMAB [Concomitant]
     Active Substance: GOLIMUMAB
     Route: 058
  200. HUMIRA [Concomitant]
     Active Substance: ADALIMUMAB
     Indication: Rheumatoid arthritis
     Route: 058
  201. HUMIRA [Concomitant]
     Active Substance: ADALIMUMAB
     Indication: Psoriatic arthropathy
     Route: 058
  202. HUMIRA [Concomitant]
     Active Substance: ADALIMUMAB
  203. HUMIRA [Concomitant]
     Active Substance: ADALIMUMAB
  204. HUMIRA [Concomitant]
     Active Substance: ADALIMUMAB
     Route: 058
  205. HUMIRA [Concomitant]
     Active Substance: ADALIMUMAB
     Route: 058
  206. HUMIRA [Concomitant]
     Active Substance: ADALIMUMAB
     Route: 058
  207. HYDROCORTISONE BUTYRATE [Concomitant]
     Active Substance: HYDROCORTISONE BUTYRATE
     Indication: Rheumatoid arthritis
     Route: 058
  208. HYDROCORTISONE PROBUTATE [Concomitant]
     Active Substance: HYDROCORTISONE PROBUTATE
     Indication: Rheumatoid arthritis
     Route: 058
  209. HYDROCORTISONE SODIUM SUCCINATE [Concomitant]
     Active Substance: HYDROCORTISONE SODIUM SUCCINATE
     Indication: Rheumatoid arthritis
     Route: 048
  210. HYDROCORTISONE SODIUM SUCCINATE [Concomitant]
     Active Substance: HYDROCORTISONE SODIUM SUCCINATE
  211. HYDROCORTISONE SODIUM SUCCINATE [Concomitant]
     Active Substance: HYDROCORTISONE SODIUM SUCCINATE
  212. HYDROCORTISONE SODIUM SUCCINATE [Concomitant]
     Active Substance: HYDROCORTISONE SODIUM SUCCINATE
     Route: 048
  213. HYDROXYCHLOROQUINE SULFATE [Concomitant]
     Active Substance: HYDROXYCHLOROQUINE SULFATE
     Indication: Systemic lupus erythematosus
  214. HYDROXYCHLOROQUINE SULFATE [Concomitant]
     Active Substance: HYDROXYCHLOROQUINE SULFATE
     Indication: Rheumatoid arthritis
     Route: 048
  215. HYDROXYCHLOROQUINE SULFATE [Concomitant]
     Active Substance: HYDROXYCHLOROQUINE SULFATE
     Route: 058
  216. HYDROXYCHLOROQUINE SULFATE [Concomitant]
     Active Substance: HYDROXYCHLOROQUINE SULFATE
     Route: 048
  217. HYDROXYCHLOROQUINE SULFATE [Concomitant]
     Active Substance: HYDROXYCHLOROQUINE SULFATE
     Route: 048
  218. HYDROXYCHLOROQUINE SULFATE [Concomitant]
     Active Substance: HYDROXYCHLOROQUINE SULFATE
     Route: 048
  219. HYDROXYCHLOROQUINE SULFATE [Concomitant]
     Active Substance: HYDROXYCHLOROQUINE SULFATE
  220. HYDROXYCHLOROQUINE SULFATE [Concomitant]
     Active Substance: HYDROXYCHLOROQUINE SULFATE
  221. HYDROXYCHLOROQUINE SULFATE [Concomitant]
     Active Substance: HYDROXYCHLOROQUINE SULFATE
  222. HYDROXYCHLOROQUINE SULFATE [Concomitant]
     Active Substance: HYDROXYCHLOROQUINE SULFATE
     Route: 048
  223. HYDROXYCHLOROQUINE SULFATE [Concomitant]
     Active Substance: HYDROXYCHLOROQUINE SULFATE
  224. HYDROXYCHLOROQUINE SULFATE [Concomitant]
     Active Substance: HYDROXYCHLOROQUINE SULFATE
     Route: 048
  225. HYDROXYCHLOROQUINE SULFATE [Concomitant]
     Active Substance: HYDROXYCHLOROQUINE SULFATE
  226. HYDROXYCHLOROQUINE SULFATE [Concomitant]
     Active Substance: HYDROXYCHLOROQUINE SULFATE
     Route: 048
  227. HYDROXYCHLOROQUINE SULFATE [Concomitant]
     Active Substance: HYDROXYCHLOROQUINE SULFATE
     Route: 048
  228. HYDROXYCHLOROQUINE SULFATE [Concomitant]
     Active Substance: HYDROXYCHLOROQUINE SULFATE
     Route: 048
  229. HYDROXYCHLOROQUINE SULFATE [Concomitant]
     Active Substance: HYDROXYCHLOROQUINE SULFATE
  230. HYDROXYCHLOROQUINE SULFATE [Concomitant]
     Active Substance: HYDROXYCHLOROQUINE SULFATE
  231. HYDROXYCHLOROQUINE SULFATE [Concomitant]
     Active Substance: HYDROXYCHLOROQUINE SULFATE
  232. HYDROXYCHLOROQUINE SULFATE [Concomitant]
     Active Substance: HYDROXYCHLOROQUINE SULFATE
  233. HYDROXYCHLOROQUINE SULFATE [Concomitant]
     Active Substance: HYDROXYCHLOROQUINE SULFATE
     Route: 058
  234. INFLIXIMAB [Concomitant]
     Active Substance: INFLIXIMAB
     Indication: Rheumatoid arthritis
     Route: 042
  235. INFLIXIMAB [Concomitant]
     Active Substance: INFLIXIMAB
     Route: 042
  236. INFLIXIMAB [Concomitant]
     Active Substance: INFLIXIMAB
  237. INFLIXIMAB [Concomitant]
     Active Substance: INFLIXIMAB
  238. INFLIXIMAB [Concomitant]
     Active Substance: INFLIXIMAB
  239. INFLIXIMAB [Concomitant]
     Active Substance: INFLIXIMAB
     Route: 042
  240. INFLIXIMAB [Concomitant]
     Active Substance: INFLIXIMAB
     Route: 042
  241. ISOPROPYL ALCOHOL [Concomitant]
     Active Substance: ISOPROPYL ALCOHOL
     Indication: Product used for unknown indication
     Route: 061
  242. LEFLUNOMIDE [Concomitant]
     Active Substance: LEFLUNOMIDE
     Indication: Rheumatoid arthritis
     Route: 048
  243. LEFLUNOMIDE [Concomitant]
     Active Substance: LEFLUNOMIDE
     Route: 048
  244. LEFLUNOMIDE [Concomitant]
     Active Substance: LEFLUNOMIDE
  245. METHOTREXATE [Concomitant]
     Active Substance: METHOTREXATE
     Indication: Rheumatoid arthritis
     Route: 055
  246. METHOTREXATE [Concomitant]
     Active Substance: METHOTREXATE
     Route: 048
  247. METHOTREXATE [Concomitant]
     Active Substance: METHOTREXATE
     Route: 048
  248. METHOTREXATE [Concomitant]
     Active Substance: METHOTREXATE
     Route: 058
  249. METHOTREXATE [Concomitant]
     Active Substance: METHOTREXATE
     Route: 013
  250. METHOTREXATE [Concomitant]
     Active Substance: METHOTREXATE
     Route: 048
  251. METHOTREXATE [Concomitant]
     Active Substance: METHOTREXATE
     Route: 013
  252. METHOTREXATE [Concomitant]
     Active Substance: METHOTREXATE
  253. METHOTREXATE [Concomitant]
     Active Substance: METHOTREXATE
     Route: 048
  254. METHOTREXATE [Concomitant]
     Active Substance: METHOTREXATE
     Route: 048
  255. METHOTREXATE [Concomitant]
     Active Substance: METHOTREXATE
     Route: 048
  256. METHOTREXATE [Concomitant]
     Active Substance: METHOTREXATE
  257. METHOTREXATE [Concomitant]
     Active Substance: METHOTREXATE
     Route: 048
  258. METHOTREXATE [Concomitant]
     Active Substance: METHOTREXATE
     Route: 048
  259. METHOTREXATE [Concomitant]
     Active Substance: METHOTREXATE
     Route: 048
  260. METHOTREXATE [Concomitant]
     Active Substance: METHOTREXATE
     Route: 048
  261. METHOTREXATE [Concomitant]
     Active Substance: METHOTREXATE
     Route: 048
  262. METHOTREXATE [Concomitant]
     Active Substance: METHOTREXATE
     Route: 048
  263. METHOTREXATE [Concomitant]
     Active Substance: METHOTREXATE
     Route: 058
  264. METHOTREXATE [Concomitant]
     Active Substance: METHOTREXATE
  265. METHOTREXATE [Concomitant]
     Active Substance: METHOTREXATE
     Route: 058
  266. METHOTREXATE [Concomitant]
     Active Substance: METHOTREXATE
     Route: 013
  267. METHOTREXATE [Concomitant]
     Active Substance: METHOTREXATE
     Route: 037
  268. METHOTREXATE [Concomitant]
     Active Substance: METHOTREXATE
  269. METHOTREXATE [Concomitant]
     Active Substance: METHOTREXATE
  270. METHOTREXATE [Concomitant]
     Active Substance: METHOTREXATE
     Route: 048
  271. METHOTREXATE [Concomitant]
     Active Substance: METHOTREXATE
     Route: 048
  272. METHOTREXATE [Concomitant]
     Active Substance: METHOTREXATE
     Route: 013
  273. METHOTREXATE [Concomitant]
     Active Substance: METHOTREXATE
     Route: 058
  274. METHOTREXATE [Concomitant]
     Active Substance: METHOTREXATE
  275. METHOTREXATE [Concomitant]
     Active Substance: METHOTREXATE
     Route: 048
  276. METHOTREXATE [Concomitant]
     Active Substance: METHOTREXATE
  277. METHOTREXATE [Concomitant]
     Active Substance: METHOTREXATE
     Route: 058
  278. METHOTREXATE [Concomitant]
     Active Substance: METHOTREXATE
     Route: 058
  279. METHOTREXATE [Concomitant]
     Active Substance: METHOTREXATE
     Route: 058
  280. METHOTREXATE [Concomitant]
     Active Substance: METHOTREXATE
     Route: 048
  281. METHOTREXATE [Concomitant]
     Active Substance: METHOTREXATE
     Route: 048
  282. METHOTREXATE [Concomitant]
     Active Substance: METHOTREXATE
     Route: 048
  283. METHOTREXATE [Concomitant]
     Active Substance: METHOTREXATE
     Route: 048
  284. METHOTREXATE [Concomitant]
     Active Substance: METHOTREXATE
     Route: 048
  285. METHOTREXATE [Concomitant]
     Active Substance: METHOTREXATE
  286. METHOTREXATE [Concomitant]
     Active Substance: METHOTREXATE
     Route: 048
  287. METHOTREXATE [Concomitant]
     Active Substance: METHOTREXATE
     Route: 048
  288. METHOTREXATE [Concomitant]
     Active Substance: METHOTREXATE
     Route: 058
  289. METHOTREXATE [Concomitant]
     Active Substance: METHOTREXATE
     Route: 048
  290. METHOTREXATE [Concomitant]
     Active Substance: METHOTREXATE
     Route: 048
  291. METHOTREXATE [Concomitant]
     Active Substance: METHOTREXATE
     Route: 048
  292. METHOTREXATE [Concomitant]
     Active Substance: METHOTREXATE
  293. METHOTREXATE [Concomitant]
     Active Substance: METHOTREXATE
     Route: 013
  294. METHOTREXATE [Concomitant]
     Active Substance: METHOTREXATE
     Route: 048
  295. MYCOPHENOLATE MOFETIL HYDROCHLORIDE [Concomitant]
     Active Substance: MYCOPHENOLATE MOFETIL HYDROCHLORIDE
     Indication: Rheumatoid arthritis
  296. NAPROXEN SODIUM [Concomitant]
     Active Substance: NAPROXEN SODIUM
     Indication: Rheumatoid arthritis
  297. NAPROXEN SODIUM [Concomitant]
     Active Substance: NAPROXEN SODIUM
  298. NEOMYCIN SULFATE [Concomitant]
     Active Substance: NEOMYCIN SULFATE
     Indication: Product used for unknown indication
  299. OXYCODONE HYDROCHLORIDE [Concomitant]
     Active Substance: OXYCODONE HYDROCHLORIDE
     Indication: Product used for unknown indication
  300. OXYCODONE TEREPHTHALATE [Concomitant]
     Active Substance: OXYCODONE TEREPHTHALATE
     Indication: Product used for unknown indication
     Route: 016
  301. OXYCODONE TEREPHTHALATE [Concomitant]
     Active Substance: OXYCODONE TEREPHTHALATE
  302. PANTOPRAZOLE SODIUM ANHYDROUS [Concomitant]
     Active Substance: PANTOPRAZOLE SODIUM ANHYDROUS
     Indication: Product used for unknown indication
  303. PERIOGARD [Concomitant]
     Active Substance: CHLORHEXIDINE GLUCONATE
     Indication: Product used for unknown indication
     Route: 002
  304. PERIOGARD [Concomitant]
     Active Substance: CHLORHEXIDINE GLUCONATE
     Route: 048
  305. PERIOGARD [Concomitant]
     Active Substance: CHLORHEXIDINE GLUCONATE
     Route: 016
  306. PERIOGARD [Concomitant]
     Active Substance: CHLORHEXIDINE GLUCONATE
  307. PHTHALYLSULFATHIAZOLE [Concomitant]
     Active Substance: PHTHALYLSULFATHIAZOLE
     Indication: Rheumatoid arthritis
     Route: 048
  308. PHTHALYLSULFATHIAZOLE [Concomitant]
     Active Substance: PHTHALYLSULFATHIAZOLE
  309. PHTHALYLSULFATHIAZOLE [Concomitant]
     Active Substance: PHTHALYLSULFATHIAZOLE
     Route: 048
  310. PHTHALYLSULFATHIAZOLE [Concomitant]
     Active Substance: PHTHALYLSULFATHIAZOLE
     Route: 048
  311. PHTHALYLSULFATHIAZOLE [Concomitant]
     Active Substance: PHTHALYLSULFATHIAZOLE
     Route: 016
  312. PHTHALYLSULFATHIAZOLE [Concomitant]
     Active Substance: PHTHALYLSULFATHIAZOLE
     Route: 048
  313. PHTHALYLSULFATHIAZOLE [Concomitant]
     Active Substance: PHTHALYLSULFATHIAZOLE
  314. PHTHALYLSULFATHIAZOLE [Concomitant]
     Active Substance: PHTHALYLSULFATHIAZOLE
     Route: 048
  315. PHTHALYLSULFATHIAZOLE [Concomitant]
     Active Substance: PHTHALYLSULFATHIAZOLE
     Route: 048
  316. PHTHALYLSULFATHIAZOLE [Concomitant]
     Active Substance: PHTHALYLSULFATHIAZOLE
     Route: 042
  317. PHTHALYLSULFATHIAZOLE [Concomitant]
     Active Substance: PHTHALYLSULFATHIAZOLE
  318. PREDNISONE [Concomitant]
     Active Substance: PREDNISONE
     Indication: Rheumatoid arthritis
     Route: 048
  319. PREDNISONE [Concomitant]
     Active Substance: PREDNISONE
     Indication: Psoriatic arthropathy
     Route: 048
  320. PREDNISONE [Concomitant]
     Active Substance: PREDNISONE
     Indication: Condition aggravated
     Route: 048
  321. PREDNISONE [Concomitant]
     Active Substance: PREDNISONE
  322. PREDNISONE [Concomitant]
     Active Substance: PREDNISONE
     Route: 042
  323. PREDNISONE [Concomitant]
     Active Substance: PREDNISONE
  324. PREDNISONE [Concomitant]
     Active Substance: PREDNISONE
     Route: 048
  325. PREDNISONE [Concomitant]
     Active Substance: PREDNISONE
  326. PREGABALIN [Concomitant]
     Active Substance: PREGABALIN
     Indication: Product used for unknown indication
  327. PREGABALIN [Concomitant]
     Active Substance: PREGABALIN
  328. PSEUDOEPHEDRINE HYDROCHLORIDE [Concomitant]
     Active Substance: PSEUDOEPHEDRINE HYDROCHLORIDE
     Indication: Rheumatoid arthritis
  329. PSEUDOEPHEDRINE HYDROCHLORIDE [Concomitant]
     Active Substance: PSEUDOEPHEDRINE HYDROCHLORIDE
  330. PSEUDOEPHEDRINE HYDROCHLORIDE [Concomitant]
     Active Substance: PSEUDOEPHEDRINE HYDROCHLORIDE
  331. PSEUDOEPHEDRINE HYDROCHLORIDE [Concomitant]
     Active Substance: PSEUDOEPHEDRINE HYDROCHLORIDE
  332. CETIRIZINE HYDROCHLORIDE\PSEUDOEPHEDRINE HYDROCHLORIDE [Concomitant]
     Active Substance: CETIRIZINE HYDROCHLORIDE\PSEUDOEPHEDRINE HYDROCHLORIDE
     Indication: Rheumatoid arthritis
  333. CETIRIZINE HYDROCHLORIDE\PSEUDOEPHEDRINE HYDROCHLORIDE [Concomitant]
     Active Substance: CETIRIZINE HYDROCHLORIDE\PSEUDOEPHEDRINE HYDROCHLORIDE
  334. CETIRIZINE HYDROCHLORIDE\PSEUDOEPHEDRINE HYDROCHLORIDE [Concomitant]
     Active Substance: CETIRIZINE HYDROCHLORIDE\PSEUDOEPHEDRINE HYDROCHLORIDE
  335. CETIRIZINE HYDROCHLORIDE\PSEUDOEPHEDRINE HYDROCHLORIDE [Concomitant]
     Active Substance: CETIRIZINE HYDROCHLORIDE\PSEUDOEPHEDRINE HYDROCHLORIDE
  336. CETIRIZINE HYDROCHLORIDE\PSEUDOEPHEDRINE HYDROCHLORIDE [Concomitant]
     Active Substance: CETIRIZINE HYDROCHLORIDE\PSEUDOEPHEDRINE HYDROCHLORIDE
     Route: 048
  337. CETIRIZINE HYDROCHLORIDE [Concomitant]
     Active Substance: CETIRIZINE HYDROCHLORIDE
     Indication: Rheumatoid arthritis
     Route: 048
  338. CETIRIZINE HYDROCHLORIDE [Concomitant]
     Active Substance: CETIRIZINE HYDROCHLORIDE
  339. CETIRIZINE HYDROCHLORIDE [Concomitant]
     Active Substance: CETIRIZINE HYDROCHLORIDE
  340. RITUXIMAB [Concomitant]
     Active Substance: RITUXIMAB
     Indication: Rheumatoid arthritis
     Route: 042
  341. RITUXIMAB [Concomitant]
     Active Substance: RITUXIMAB
     Route: 058
  342. RITUXIMAB [Concomitant]
     Active Substance: RITUXIMAB
     Route: 042
  343. RITUXIMAB [Concomitant]
     Active Substance: RITUXIMAB
     Route: 042
  344. SULFASALAZINE [Concomitant]
     Active Substance: SULFASALAZINE
     Indication: Rheumatoid arthritis
  345. SULFASALAZINE [Concomitant]
     Active Substance: SULFASALAZINE
     Route: 048
  346. SULFASALAZINE [Concomitant]
     Active Substance: SULFASALAZINE
     Route: 048
  347. SULFASALAZINE [Concomitant]
     Active Substance: SULFASALAZINE
  348. SULFASALAZINE [Concomitant]
     Active Substance: SULFASALAZINE
     Route: 048
  349. SULFASALAZINE [Concomitant]
     Active Substance: SULFASALAZINE
  350. SULFASALAZINE [Concomitant]
     Active Substance: SULFASALAZINE
     Route: 048
  351. SULFASALAZINE [Concomitant]
     Active Substance: SULFASALAZINE
     Route: 048
  352. SULFASALAZINE [Concomitant]
     Active Substance: SULFASALAZINE
  353. SIMPONI [Concomitant]
     Active Substance: GOLIMUMAB
     Indication: Rheumatoid arthritis
     Route: 042
  354. SIMPONI [Concomitant]
     Active Substance: GOLIMUMAB
     Indication: Psoriatic arthropathy
     Route: 052
  355. SIMPONI [Concomitant]
     Active Substance: GOLIMUMAB
     Route: 058
  356. SIMPONI [Concomitant]
     Active Substance: GOLIMUMAB
     Route: 058
  357. SIMPONI [Concomitant]
     Active Substance: GOLIMUMAB
  358. SULFAMETHOXAZOLE [Concomitant]
     Active Substance: SULFAMETHOXAZOLE
     Indication: Rheumatoid arthritis
     Route: 042
  359. SULFAMETHOXAZOLE [Concomitant]
     Active Substance: SULFAMETHOXAZOLE
  360. SULFAMETHOXAZOLE [Concomitant]
     Active Substance: SULFAMETHOXAZOLE
     Route: 048
  361. SULFAMETHOXAZOLE [Concomitant]
     Active Substance: SULFAMETHOXAZOLE
  362. SULFAMETHOXAZOLE [Concomitant]
     Active Substance: SULFAMETHOXAZOLE
     Route: 048
  363. SULFAMETHOXAZOLE [Concomitant]
     Active Substance: SULFAMETHOXAZOLE
     Route: 016
  364. SULFAMETHOXAZOLE [Concomitant]
     Active Substance: SULFAMETHOXAZOLE
     Route: 048
  365. SULFAMETHOXAZOLE [Concomitant]
     Active Substance: SULFAMETHOXAZOLE
  366. SULFAMETHOXAZOLE [Concomitant]
     Active Substance: SULFAMETHOXAZOLE
     Route: 048
  367. SULFAMETHOXAZOLE [Concomitant]
     Active Substance: SULFAMETHOXAZOLE
     Route: 048
  368. SULFAMETHOXAZOLE [Concomitant]
     Active Substance: SULFAMETHOXAZOLE
     Route: 048
  369. SULFAMETHOXAZOLE\TRIMETHOPRIM [Concomitant]
     Active Substance: SULFAMETHOXAZOLE\TRIMETHOPRIM
     Indication: Product used for unknown indication
  370. SULFASALAZINE [Concomitant]
     Active Substance: SULFASALAZINE
     Indication: Rheumatoid arthritis
     Route: 048
  371. SULFASALAZINE [Concomitant]
     Active Substance: SULFASALAZINE
     Route: 048
  372. SULFASALAZINE [Concomitant]
     Active Substance: SULFASALAZINE
     Route: 048
  373. SULFASALAZINE [Concomitant]
     Active Substance: SULFASALAZINE
  374. SULFASALAZINE [Concomitant]
     Active Substance: SULFASALAZINE
     Route: 048
  375. SULFASALAZINE [Concomitant]
     Active Substance: SULFASALAZINE
  376. SULFASALAZINE [Concomitant]
     Active Substance: SULFASALAZINE
     Route: 048
  377. SULFASALAZINE [Concomitant]
     Active Substance: SULFASALAZINE
     Route: 048
  378. SULFASALAZINE [Concomitant]
     Active Substance: SULFASALAZINE
     Route: 048
  379. SULFASALAZINE [Concomitant]
     Active Substance: SULFASALAZINE
     Route: 048
  380. SULFASALAZINE [Concomitant]
     Active Substance: SULFASALAZINE
     Route: 048
  381. SULFASALAZINE [Concomitant]
     Active Substance: SULFASALAZINE
  382. SULFASALAZINE [Concomitant]
     Active Substance: SULFASALAZINE
  383. SULFASALAZINE [Concomitant]
     Active Substance: SULFASALAZINE
     Route: 048
  384. SULFASALAZINE [Concomitant]
     Active Substance: SULFASALAZINE
     Route: 058
  385. SULFASALAZINE [Concomitant]
     Active Substance: SULFASALAZINE
     Route: 058
  386. SULFASALAZINE [Concomitant]
     Active Substance: SULFASALAZINE
     Route: 048
  387. SULFASALAZINE [Concomitant]
     Active Substance: SULFASALAZINE
     Route: 048
  388. SULFASALAZINE [Concomitant]
     Active Substance: SULFASALAZINE
     Route: 048
  389. SULFASALAZINE [Concomitant]
     Active Substance: SULFASALAZINE
  390. SULFASALAZINE [Concomitant]
     Active Substance: SULFASALAZINE
  391. SULFASALAZINE [Concomitant]
     Active Substance: SULFASALAZINE
     Route: 048
  392. SULFASALAZINE [Concomitant]
     Active Substance: SULFASALAZINE
     Route: 048
  393. TOCILIZUMAB [Concomitant]
     Active Substance: TOCILIZUMAB
     Indication: Rheumatoid arthritis
     Route: 058
  394. TOCILIZUMAB [Concomitant]
     Active Substance: TOCILIZUMAB
  395. TOFACITINIB CITRATE [Concomitant]
     Active Substance: TOFACITINIB CITRATE
     Indication: Rheumatoid arthritis
  396. TOFACITINIB CITRATE [Concomitant]
     Active Substance: TOFACITINIB CITRATE
     Indication: Psoriatic arthropathy
     Route: 048
  397. TOFACITINIB CITRATE [Concomitant]
     Active Substance: TOFACITINIB CITRATE
     Route: 058
  398. TOFACITINIB CITRATE [Concomitant]
     Active Substance: TOFACITINIB CITRATE
  399. TOFACITINIB CITRATE [Concomitant]
     Active Substance: TOFACITINIB CITRATE
  400. TOFACITINIB CITRATE [Concomitant]
     Active Substance: TOFACITINIB CITRATE
     Route: 048
  401. TRAMADOL HYDROCHLORIDE [Concomitant]
     Active Substance: TRAMADOL HYDROCHLORIDE
     Indication: Product used for unknown indication
  402. TUMS [Concomitant]
     Active Substance: CALCIUM CARBONATE
     Indication: Product used for unknown indication
  403. USTEKINUMAB [Concomitant]
     Active Substance: USTEKINUMAB
     Indication: Psoriatic arthropathy
     Route: 058
  404. USTEKINUMAB [Concomitant]
     Active Substance: USTEKINUMAB
  405. USTEKINUMAB [Concomitant]
     Active Substance: USTEKINUMAB
     Route: 058
  406. USTEKINUMAB [Concomitant]
     Active Substance: USTEKINUMAB
  407. USTEKINUMAB [Concomitant]
     Active Substance: USTEKINUMAB
     Route: 042
  408. USTEKINUMAB [Concomitant]
     Active Substance: USTEKINUMAB
     Route: 058
  409. USTEKINUMAB [Concomitant]
     Active Substance: USTEKINUMAB
     Route: 058
  410. VITAMIN C [Concomitant]
     Active Substance: ASCORBIC ACID
     Indication: Product used for unknown indication
     Route: 016
  411. CHOLECALCIFEROL [Concomitant]
     Active Substance: CHOLECALCIFEROL
     Indication: Product used for unknown indication
  412. PREDNISONE [Concomitant]
     Active Substance: PREDNISONE
     Indication: Rheumatoid arthritis
     Route: 048
  413. CALCIUM CARBONATE [Concomitant]
     Active Substance: CALCIUM CARBONATE
     Indication: Product used for unknown indication
  414. CELEBREX [Concomitant]
     Active Substance: CELECOXIB
     Indication: Product used for unknown indication
  415. CELEBREX [Concomitant]
     Active Substance: CELECOXIB
     Route: 048
  416. LYRICA [Concomitant]
     Active Substance: PREGABALIN
     Indication: Product used for unknown indication
  417. PERCOCET [Concomitant]
     Active Substance: ACETAMINOPHEN\OXYCODONE HYDROCHLORIDE
     Indication: Product used for unknown indication
  418. CETIRIZINE HYDROCHLORIDE [Concomitant]
     Active Substance: CETIRIZINE HYDROCHLORIDE
     Indication: Rheumatoid arthritis
     Route: 048
  419. REMICADE [Concomitant]
     Active Substance: INFLIXIMAB
     Indication: Rheumatoid arthritis
     Route: 042
  420. STELARA [Concomitant]
     Active Substance: USTEKINUMAB
     Indication: Product used for unknown indication
     Route: 058
  421. STELARA [Concomitant]
     Active Substance: USTEKINUMAB
     Route: 058
  422. STELARA [Concomitant]
     Active Substance: USTEKINUMAB
     Route: 042
  423. DICLOFENAC DIETHYLAMINE [Concomitant]
     Active Substance: DICLOFENAC DIETHYLAMINE
     Indication: Product used for unknown indication
  424. XELJANZ [Concomitant]
     Active Substance: TOFACITINIB CITRATE
     Indication: Rheumatoid arthritis
     Route: 048
  425. CHLORHEXIDINE [Concomitant]
     Active Substance: CHLORHEXIDINE
     Indication: Product used for unknown indication
     Route: 061
  426. CHLORHEXIDINE [Concomitant]
     Active Substance: CHLORHEXIDINE
     Route: 002
  427. CHLORHEXIDINE [Concomitant]
     Active Substance: CHLORHEXIDINE
     Route: 048
  428. HYDROCORTISONE [Concomitant]
     Active Substance: HYDROCORTISONE
     Indication: Rheumatoid arthritis
     Route: 003
  429. HYDROCORTISONE [Concomitant]
     Active Substance: HYDROCORTISONE
     Route: 058
  430. HYDROCORTISONE [Concomitant]
     Active Substance: HYDROCORTISONE
     Route: 061
  431. HYDROCORTISONE [Concomitant]
     Active Substance: HYDROCORTISONE
  432. HYDROCORTISONE [Concomitant]
     Active Substance: HYDROCORTISONE
     Route: 048
  433. HYDROXYCHLOROQUINE [Concomitant]
     Active Substance: HYDROXYCHLOROQUINE
     Indication: Rheumatoid arthritis
  434. HYDROXYCHLOROQUINE [Concomitant]
     Active Substance: HYDROXYCHLOROQUINE
     Route: 048
  435. HYDROXYCHLOROQUINE [Concomitant]
     Active Substance: HYDROXYCHLOROQUINE
     Route: 048
  436. HYDROXYCHLOROQUINE [Concomitant]
     Active Substance: HYDROXYCHLOROQUINE
     Route: 048
  437. HYDROXYCHLOROQUINE [Concomitant]
     Active Substance: HYDROXYCHLOROQUINE
  438. HYDROXYCHLOROQUINE [Concomitant]
     Active Substance: HYDROXYCHLOROQUINE
  439. NEOMYCIN [Concomitant]
     Active Substance: NEOMYCIN
     Indication: Product used for unknown indication
  440. OTEZLA [Concomitant]
     Active Substance: APREMILAST
     Indication: Product used for unknown indication
     Route: 048
  441. OTEZLA [Concomitant]
     Active Substance: APREMILAST
     Route: 048
  442. OXYCODONE [Concomitant]
     Active Substance: OXYCODONE
     Indication: Product used for unknown indication
  443. SULFASALAZINE [Concomitant]
     Active Substance: SULFASALAZINE
     Indication: Rheumatoid arthritis
  444. SULFASALAZINE [Concomitant]
     Active Substance: SULFASALAZINE
  445. SULFASALAZINE [Concomitant]
     Active Substance: SULFASALAZINE
     Route: 048
  446. SULFASALAZINE [Concomitant]
     Active Substance: SULFASALAZINE
     Route: 048
  447. SULFASALAZINE [Concomitant]
     Active Substance: SULFASALAZINE
  448. SULFASALAZINE [Concomitant]
     Active Substance: SULFASALAZINE
     Route: 048
  449. SULFASALAZINE [Concomitant]
     Active Substance: SULFASALAZINE
     Route: 048
  450. SULFASALAZINE [Concomitant]
     Active Substance: SULFASALAZINE
     Route: 048
  451. TOFACITINIB [Concomitant]
     Active Substance: TOFACITINIB
     Indication: Rheumatoid arthritis

REACTIONS (1)
  - Death [Fatal]
